FAERS Safety Report 9925888 (Version 1)
Quarter: 2014Q1

REPORT INFORMATION
  Report Type: Spontaneous
  Country: IT (occurrence: IT)
  Receive Date: 20140226
  Receipt Date: 20140226
  Transmission Date: 20141002
  Serious: Yes (Other)
  Sender: FDA-Public Use
  Company Number: IT-WATSON-2014-03128

PATIENT
  Age: 71 Year
  Sex: Male

DRUGS (3)
  1. FINASTERIDE (UNKNOWN) [Suspect]
     Indication: DRUG ABUSE
     Dosage: 15 DF, TOTAL
     Route: 048
     Dates: start: 20131221, end: 20131221
  2. METFORMIN (UNKNOWN) [Suspect]
     Indication: DRUG ABUSE
     Dosage: 2000 MG, TOTAL
     Route: 048
     Dates: start: 20131221, end: 20131221
  3. SAMYR /00882301/ [Suspect]
     Indication: DRUG ABUSE
     Dosage: 4000 MG, TOTAL
     Route: 048
     Dates: start: 20131221, end: 20131221

REACTIONS (2)
  - Drug abuse [Recovering/Resolving]
  - Agitation [Recovering/Resolving]
